FAERS Safety Report 6522026-4 (Version None)
Quarter: 2009Q4

REPORT INFORMATION
  Report Type: 
  Country: None (occurrence: None)
  Receive Date: 20091230
  Receipt Date: 20091223
  Transmission Date: 20100525
  Serious: Yes (Death)
  Sender: FDA-Public Use
  Company Number: IT-ROCHE-676234

PATIENT
  Sex: Female
  Weight: 52 kg

DRUGS (8)
  1. BEVACIZUMAB [Suspect]
     Indication: NON-SMALL CELL LUNG CANCER
     Dosage: FREQUENCY AS 21
     Route: 042
     Dates: start: 20091030, end: 20091211
  2. PEMETREXED [Suspect]
     Indication: NON-SMALL CELL LUNG CANCER
     Dosage: FREQUENCY AS 21
     Route: 042
     Dates: start: 20091030, end: 20091211
  3. CISPLATIN [Suspect]
     Indication: NON-SMALL CELL LUNG CANCER
     Dosage: FREQUENCY 21
     Route: 042
     Dates: start: 20091030, end: 20091211
  4. BETA-BLOCKER [Concomitant]
     Dates: start: 20090101
  5. ZOLOFT [Concomitant]
     Dates: start: 20090101
  6. LANSOX [Concomitant]
     Dates: start: 20090101
  7. VALPRESSION [Concomitant]
     Dates: start: 20090101
  8. EUTIROX [Concomitant]
     Dates: start: 20090101

REACTIONS (1)
  - DEATH [None]
